FAERS Safety Report 16099617 (Version 1)
Quarter: 2019Q1

REPORT INFORMATION
  Report Type: Spontaneous
  Country: SE (occurrence: SE)
  Receive Date: 20190321
  Receipt Date: 20190321
  Transmission Date: 20190418
  Serious: Yes (Other)
  Sender: FDA-Public Use
  Company Number: SE-TEVA-2019-SE-1029219

PATIENT
  Sex: Male

DRUGS (1)
  1. BISOPROLOL ACTAVIS [Suspect]
     Active Substance: BISOPROLOL
     Route: 065
     Dates: end: 20180614

REACTIONS (2)
  - Paralysis [Unknown]
  - Hypoaesthesia [Unknown]
